FAERS Safety Report 16439465 (Version 2)
Quarter: 2019Q3

REPORT INFORMATION
  Report Type: Spontaneous
  Country: US (occurrence: US)
  Receive Date: 20190617
  Receipt Date: 20190731
  Transmission Date: 20191004
  Serious: No
  Sender: FDA-Public Use
  Company Number: US-PFIZER INC-2019254726

PATIENT
  Sex: Female
  Weight: 71.66 kg

DRUGS (1)
  1. TIKOSYN [Suspect]
     Active Substance: DOFETILIDE
     Indication: SINUS ARRHYTHMIA
     Dosage: UNK

REACTIONS (2)
  - Oedema [Recovered/Resolved]
  - Blood pressure abnormal [Recovering/Resolving]
